FAERS Safety Report 4511134-5 (Version None)
Quarter: 2004Q4

REPORT INFORMATION
  Report Type: 
  Country: None (occurrence: None)
  Receive Date: 20041012
  Receipt Date: 20040615
  Transmission Date: 20050328
  Serious: No
  Sender: FDA-Public Use
  Company Number: PHEH2004US06613

PATIENT
  Sex: Male

DRUGS (1)
  1. ELIDEL [Suspect]
     Indication: ERYTHEMA
     Dosage: TOPICAL
     Route: 061

REACTIONS (2)
  - APPLICATION SITE REACTION [None]
  - CONDITION AGGRAVATED [None]
